FAERS Safety Report 4692199-7 (Version None)
Quarter: 2005Q2

REPORT INFORMATION
  Report Type: 
  Country: None (occurrence: None)
  Receive Date: 20050615
  Receipt Date: 20050607
  Transmission Date: 20051028
  Serious: Yes (Life-Threatening)
  Sender: FDA-Public Use
  Company Number: 2005084128

PATIENT
  Age: 70 Year
  Sex: Male

DRUGS (5)
  1. SPIRONOLACTONE [Suspect]
     Indication: HYPERTENSION
     Dosage: 25 MG (25 MG, DAILY INTERVAL: EVERY DAY, ORAL
     Route: 048
     Dates: start: 20050207, end: 20050419
  2. ENALAPRIL MALEATE [Suspect]
     Indication: HYPERTENSION
     Dosage: 20 MG (20 MG, DAILY INTERVAL: EVERY DAY, ORAL
     Route: 048
     Dates: start: 20050207, end: 20050419
  3. DIGOXIN [Suspect]
     Indication: ARRHYTHMIA
     Dosage: 125 MCG, ORAL
     Route: 048
     Dates: start: 20050207, end: 20050419
  4. CARVEDILOL [Suspect]
     Indication: MYOCARDIAL ISCHAEMIA
     Dosage: 6.3 MG (6.25 MG, EVERY DAY), ORAL
     Route: 048
     Dates: start: 20050207, end: 20050419
  5. TORSEMIDE [Suspect]
     Indication: HYPERTENSION
     Dosage: 10 MG (10 MG, DAILY INTERVAL: EVERY), ORAL
     Route: 048
     Dates: start: 20050207

REACTIONS (5)
  - ATRIOVENTRICULAR BLOCK COMPLETE [None]
  - DRUG INTERACTION [None]
  - HYPERKALAEMIA [None]
  - RENAL FAILURE ACUTE [None]
  - SUPRAVENTRICULAR EXTRASYSTOLES [None]
